FAERS Safety Report 6106894-6 (Version None)
Quarter: 2009Q1

REPORT INFORMATION
  Report Type: 
  Country: None (occurrence: None)
  Receive Date: 20090305
  Receipt Date: 20090216
  Transmission Date: 20090719
  Serious: Yes (Other)
  Sender: FDA-Public Use
  Company Number: 20090051

PATIENT
  Sex: Female

DRUGS (1)
  1. VENOFER [Suspect]
     Indication: HAEMOGLOBIN ABNORMAL
     Dosage: 100 MG INTRAMUSCULAR
     Route: 030
     Dates: start: 20081205

REACTIONS (7)
  - GAIT DISTURBANCE [None]
  - HAEMOGLOBIN ABNORMAL [None]
  - INCORRECT ROUTE OF DRUG ADMINISTRATION [None]
  - INJECTION SITE IRRITATION [None]
  - MUSCLE SWELLING [None]
  - MUSCULOSKELETAL STIFFNESS [None]
  - MYALGIA [None]
